FAERS Safety Report 8464787-3 (Version None)
Quarter: 2012Q2

REPORT INFORMATION
  Report Type: 
  Country: None (occurrence: None)
  Receive Date: 20120626
  Receipt Date: 20120618
  Transmission Date: 20120825
  Serious: Yes (Other)
  Sender: FDA-Public Use
  Company Number: GB-US-EMD SERONO, INC.-7132272

PATIENT
  Sex: Male

DRUGS (8)
  1. REBIF [Suspect]
     Indication: RELAPSING-REMITTING MULTIPLE SCLEROSIS
     Route: 058
     Dates: start: 20120423, end: 20120523
  2. OLANZAPINE [Concomitant]
     Indication: PRODUCT USED FOR UNKNOWN INDICATION
  3. REBIF [Suspect]
     Route: 058
     Dates: start: 20120523
  4. LITHIUM [Concomitant]
     Indication: PRODUCT USED FOR UNKNOWN INDICATION
  5. VALPROATE SODIUM [Concomitant]
     Indication: PRODUCT USED FOR UNKNOWN INDICATION
  6. ACETAMINOPHEN [Concomitant]
     Indication: HEADACHE
  7. REBIF [Suspect]
     Route: 058
     Dates: start: 20120611
  8. STEROIDS [Suspect]
     Indication: MULTIPLE SCLEROSIS RELAPSE

REACTIONS (6)
  - DYSGEUSIA [None]
  - MALAISE [None]
  - BIPOLAR DISORDER [None]
  - DEPRESSION [None]
  - MULTIPLE SCLEROSIS RELAPSE [None]
  - INFLUENZA LIKE ILLNESS [None]
